FAERS Safety Report 10098427 (Version 1)
Quarter: 2014Q2

REPORT INFORMATION
  Report Type: Spontaneous
  Country: US (occurrence: US)
  Receive Date: 20140423
  Receipt Date: 20140423
  Transmission Date: 20141212
  Serious: No
  Sender: FDA-Public Use
  Company Number: US-PFIZER INC-2014111670

PATIENT
  Age: 47 Year
  Sex: Female
  Weight: 82.09 kg

DRUGS (6)
  1. GABAPENTIN [Suspect]
     Indication: BACK DISORDER
     Dosage: 300 MG, 3X/DAY
     Dates: start: 20140418
  2. GABAPENTIN [Suspect]
     Indication: NEUROPATHY PERIPHERAL
  3. MELOXICAM [Concomitant]
     Indication: ARTHRITIS
     Dosage: 50 MG, UNK
  4. LEVOTHYROXINE [Concomitant]
     Indication: HYPOTHYROIDISM
     Dosage: 50 UG, UNK
  5. SERTRALINE HYDROCHLORIDE [Concomitant]
     Indication: DEPRESSION
     Dosage: 100 MG, UNK
  6. LORTAB 10 [Concomitant]
     Indication: INTERVERTEBRAL DISC PROTRUSION
     Dosage: UNK

REACTIONS (5)
  - Abdominal distension [Not Recovered/Not Resolved]
  - Eye swelling [Not Recovered/Not Resolved]
  - Hypoaesthesia [Not Recovered/Not Resolved]
  - Peripheral swelling [Not Recovered/Not Resolved]
  - Paraesthesia [Not Recovered/Not Resolved]
